FAERS Safety Report 5431011-5 (Version None)
Quarter: 2007Q3

REPORT INFORMATION
  Report Type: 
  Country: None (occurrence: None)
  Receive Date: 20070830
  Receipt Date: 20070822
  Transmission Date: 20080115
  Serious: Yes (Congenital Anomaly)
  Sender: FDA-Public Use
  Company Number: D0054096A

PATIENT
  Sex: Female

DRUGS (1)
  1. VIANI FORTE [Suspect]
     Indication: ASTHMA
     Dosage: 150UG UNKNOWN
     Route: 055

REACTIONS (4)
  - CONGENITAL ANOMALY [None]
  - DELIVERY [None]
  - DRUG EXPOSURE DURING PREGNANCY [None]
  - POLYDACTYLY [None]
